FAERS Safety Report 4528828-8 (Version None)
Quarter: 2004Q4

REPORT INFORMATION
  Report Type: 
  Country: None (occurrence: None)
  Receive Date: 20041216
  Receipt Date: 20041209
  Transmission Date: 20050328
  Serious: Yes (Death, Hospitalization)
  Sender: FDA-Public Use
  Company Number: FR-GLAXOSMITHKLINE-B0359975A

PATIENT
  Age: 30 Year
  Sex: Male
  Weight: 48 kg

DRUGS (4)
  1. ZOVIRAX [Suspect]
     Indication: ILL-DEFINED DISORDER
     Route: 065
     Dates: end: 20041004
  2. SOLU-MEDROL [Suspect]
     Route: 065
     Dates: end: 20041004
  3. CELLCEPT [Suspect]
     Route: 048
     Dates: start: 20040215, end: 20041004
  4. NITAZOXANIDE [Suspect]
     Indication: GASTROENTERITIS CRYPTOSPORIDIAL
     Dosage: 1G PER DAY
     Route: 048
     Dates: start: 20040930

REACTIONS (15)
  - ANURIA [None]
  - ASCITES [None]
  - BLOOD ALKALINE PHOSPHATASE INCREASED [None]
  - COMA [None]
  - CONFUSIONAL STATE [None]
  - DIARRHOEA [None]
  - GAMMA-GLUTAMYLTRANSFERASE INCREASED [None]
  - GENERAL PHYSICAL HEALTH DETERIORATION [None]
  - HAEMOLYTIC ANAEMIA [None]
  - HAEMOLYTIC URAEMIC SYNDROME [None]
  - MALNUTRITION [None]
  - RENAL FAILURE [None]
  - SCLERODERMA [None]
  - SHOCK [None]
  - THROMBOCYTOPENIA [None]
